FAERS Safety Report 19018632 (Version 4)
Quarter: 2021Q3

REPORT INFORMATION
  Report Type: Report from Study
  Country: US (occurrence: US)
  Receive Date: 20210317
  Receipt Date: 20210814
  Transmission Date: 20211014
  Serious: Yes (Other)
  Sender: FDA-Public Use
  Company Number: NVSC2021US054919

PATIENT
  Sex: Male

DRUGS (1)
  1. ENTRESTO [Suspect]
     Active Substance: SACUBITRIL\VALSARTAN
     Indication: PRODUCT USED FOR UNKNOWN INDICATION
     Dosage: UNK, BID
     Route: 048
     Dates: start: 202012

REACTIONS (6)
  - Type 2 diabetes mellitus [Unknown]
  - Cough [Unknown]
  - Peripheral vascular disorder [Unknown]
  - Blister infected [Unknown]
  - Drug ineffective [Unknown]
  - Peripheral swelling [Unknown]
